FAERS Safety Report 24754065 (Version 1)
Quarter: 2024Q4

REPORT INFORMATION
  Report Type: Spontaneous
  Country: AU (occurrence: AU)
  Receive Date: 20241219
  Receipt Date: 20241219
  Transmission Date: 20250114
  Serious: Yes (Hospitalization, Other)
  Sender: JOHNSON AND JOHNSON
  Company Number: AU-JNJFOC-20190239186

PATIENT
  Age: 4 Year
  Sex: Male

DRUGS (1)
  1. RISPERDAL [Suspect]
     Active Substance: RISPERIDONE
     Indication: Product used for unknown indication
     Dosage: EXPIRATION DATE: UNKNOWN
     Route: 048

REACTIONS (7)
  - Drooling [Recovered/Resolved]
  - Accidental overdose [Unknown]
  - Somnolence [Unknown]
  - Lethargy [Recovered/Resolved]
  - Device use confusion [Unknown]
  - Off label use [Unknown]
  - Product use issue [Unknown]
